FAERS Safety Report 17611182 (Version 2)
Quarter: 2020Q4

REPORT INFORMATION
  Report Type: Spontaneous
  Country: US (occurrence: US)
  Receive Date: 20200401
  Receipt Date: 20201005
  Transmission Date: 20210113
  Serious: Yes (Other)
  Sender: FDA-Public Use
  Company Number: US-SAKK-2020SA077408AA

PATIENT

DRUGS (6)
  1. RIVAROXABAN [Suspect]
     Active Substance: RIVAROXABAN
     Indication: PRODUCT USED FOR UNKNOWN INDICATION
     Dosage: UNK
     Route: 065
     Dates: start: 201911
  2. ELIQUIS [Suspect]
     Active Substance: APIXABAN
     Dosage: 5 MG, BID
     Route: 048
     Dates: start: 202002
  3. ELIQUIS [Suspect]
     Active Substance: APIXABAN
     Dosage: 0.5 MG
     Route: 048
  4. ELIQUIS [Suspect]
     Active Substance: APIXABAN
     Indication: THROMBOSIS
     Dosage: 5.5 MG
     Route: 048
     Dates: start: 20191101
  5. PLAVIX [Suspect]
     Active Substance: CLOPIDOGREL BISULFATE
     Indication: CEREBROVASCULAR ACCIDENT
     Dosage: UNK
  6. ELIQUIS [Suspect]
     Active Substance: APIXABAN
     Dosage: 10 MG, BID
     Route: 048

REACTIONS (5)
  - Thrombosis [Not Recovered/Not Resolved]
  - Prescribed underdose [Unknown]
  - Peripheral swelling [Unknown]
  - Drug ineffective [Unknown]
  - Acrochordon [Unknown]
